FAERS Safety Report 5924464-7 (Version None)
Quarter: 2008Q4

REPORT INFORMATION
  Report Type: 
  Country: None (occurrence: None)
  Receive Date: 20081015
  Receipt Date: 20080930
  Transmission Date: 20090506
  Serious: Yes (Hospitalization, Other)
  Sender: FDA-Public Use
  Company Number: 2008-02023

PATIENT
  Age: 61 Year
  Sex: Male
  Weight: 55 kg

DRUGS (27)
  1. VELCADE [Suspect]
     Indication: MULTIPLE MYELOMA
     Dosage: 2.1 MG, INTRAVENOUS; 1.6 MG, INTRAVENOUS
     Route: 042
     Dates: start: 20080408, end: 20080418
  2. VELCADE [Suspect]
     Indication: MULTIPLE MYELOMA
     Dosage: 2.1 MG, INTRAVENOUS; 1.6 MG, INTRAVENOUS
     Route: 042
     Dates: start: 20080515, end: 20080529
  3. MUCOSTA (REBAMIPIDE) [Concomitant]
  4. ITRACONAZOLE [Concomitant]
  5. FAMOTIDINE [Concomitant]
  6. BIO THREE (BACTERIA NOS) [Concomitant]
  7. ACETAMINOPHEN [Concomitant]
  8. LOXOPROFEN SODIUM (LOXOPROFEN SODIUM) [Concomitant]
  9. LEVOFLOXACIN [Concomitant]
  10. ACYCLOVIR [Concomitant]
  11. MAGNESIUM OXIDE (MAGNESIUM OXIDE) [Concomitant]
  12. FORSENID (SENNOSIDE A+B) [Concomitant]
  13. LECICARBON (SODIUM BICARBONATE, LECITHIN, SODIUM PHOSPHATE MONOBASIC ( [Concomitant]
  14. KALIMATE (CALCIUM POLYSTYRENE SULFONATE) [Concomitant]
  15. LAXOBERON (SODIUM PICOSULFATE) [Concomitant]
  16. SULFAMETHOXAZOLE AND TRIMETHOPRIM [Concomitant]
  17. VALTREX [Concomitant]
  18. MECOBALAMIN (MECOBALAMIN) [Concomitant]
  19. GOSHAJINKIGAN (HERBAL EXTRACTS NOS) [Concomitant]
  20. PYDOXAL (PYRIDOXAL PHOSPHATE) [Concomitant]
  21. AZULENE (AZULENE) [Concomitant]
  22. FLUCONAZOLE [Concomitant]
  23. GABAPENTIN [Concomitant]
  24. MAGNESIUM OXIDE (MAGNESIUM OXIDE) [Concomitant]
  25. DAI-KENCHU-TO [Concomitant]
  26. CROTAMITON (CROTAMITON) [Concomitant]
  27. NEUROTROPIN (ORGAN LYSATE, STANDARDIZED) [Concomitant]

REACTIONS (11)
  - BRONCHIOLOALVEOLAR CARCINOMA [None]
  - CONSTIPATION [None]
  - CYTOMEGALOVIRUS ANTIBODY POSITIVE [None]
  - DISEASE PROGRESSION [None]
  - HERPES ZOSTER DISSEMINATED [None]
  - NEUROPATHY PERIPHERAL [None]
  - PSEUDOMEMBRANOUS COLITIS [None]
  - PULMONARY ALVEOLAR HAEMORRHAGE [None]
  - RESPIRATORY DISORDER [None]
  - SUBILEUS [None]
  - TUMOUR LYSIS SYNDROME [None]
